FAERS Safety Report 8476167-5 (Version None)
Quarter: 2012Q2

REPORT INFORMATION
  Report Type: 
  Country: None (occurrence: None)
  Receive Date: 20120628
  Receipt Date: 20120619
  Transmission Date: 20120825
  Serious: Yes (Other)
  Sender: FDA-Public Use
  Company Number: US-ELI_LILLY_AND_COMPANY-US201206008351

PATIENT
  Age: 66 Year
  Sex: Female

DRUGS (1)
  1. EVISTA [Suspect]
     Dosage: UNK, UNKNOWN
     Route: 065

REACTIONS (7)
  - HIP FRACTURE [None]
  - PELVIC FRACTURE [None]
  - RIB FRACTURE [None]
  - PAIN [None]
  - CERVICAL VERTEBRAL FRACTURE [None]
  - SPINAL FRACTURE [None]
  - FRACTURE [None]
